FAERS Safety Report 22313426 (Version 1)
Quarter: 2023Q2

REPORT INFORMATION
  Report Type: Report from Study
  Country: US (occurrence: US)
  Receive Date: 20230512
  Receipt Date: 20230512
  Transmission Date: 20230722
  Serious: No
  Sender: FDA-Public Use
  Company Number: US-002147023-NVSC2023US107881

PATIENT
  Sex: Male
  Weight: 88.45 kg

DRUGS (2)
  1. ENTRESTO [Suspect]
     Active Substance: SACUBITRIL\VALSARTAN
     Indication: Product used for unknown indication
     Dosage: 1 DOSAGE FORM, BID
     Route: 048
  2. JARDIANCE [Concomitant]
     Active Substance: EMPAGLIFLOZIN
     Indication: Cardiac disorder
     Dosage: UNK
     Route: 065

REACTIONS (4)
  - Dyspnoea exertional [Unknown]
  - Decreased activity [Unknown]
  - Weight decreased [Unknown]
  - Asthenia [Unknown]
